FAERS Safety Report 4305691-1 (Version None)
Quarter: 2004Q1

REPORT INFORMATION
  Report Type: 
  Country: None (occurrence: None)
  Receive Date: 20040223
  Receipt Date: 20031028
  Transmission Date: 20041129
  Serious: No
  Sender: FDA-Public Use
  Company Number: SU-2003-001882

PATIENT
  Age: 51 Year
  Sex: Male
  Weight: 109.3169 kg

DRUGS (3)
  1. BENICAR [Suspect]
     Indication: HYPERTENSION
     Dosage: 20 MG QD PO
     Route: 048
     Dates: start: 20031009, end: 20031030
  2. ZYPREXA [Concomitant]
  3. BUSPAR [Concomitant]

REACTIONS (1)
  - SOMNOLENCE [None]
